FAERS Safety Report 11850016 (Version 1)
Quarter: 2015Q4

REPORT INFORMATION
  Report Type: Spontaneous
  Country: US (occurrence: US)
  Receive Date: 20151218
  Receipt Date: 20151218
  Transmission Date: 20160305
  Serious: Yes (Other)
  Sender: FDA-Public Use
  Company Number: US-JNJFOC-20151207478

PATIENT

DRUGS (23)
  1. DOXORUBICIN HYDROCHLORIDE. [Suspect]
     Active Substance: DOXORUBICIN HYDROCHLORIDE
     Indication: RHABDOMYOSARCOMA
     Dosage: 15 MIN ONCE PER CYCLE
     Route: 042
  2. DOXORUBICIN HYDROCHLORIDE. [Suspect]
     Active Substance: DOXORUBICIN HYDROCHLORIDE
     Indication: ADRENAL GLAND CANCER
     Dosage: 15 MIN ONCE PER CYCLE
     Route: 042
  3. DEXRAZOXANE. [Concomitant]
     Active Substance: DEXRAZOXANE
     Route: 065
  4. FILGRASTIM [Concomitant]
     Active Substance: FILGRASTIM
     Route: 065
  5. TARIQUIDAR DIMESYLATE. [Suspect]
     Active Substance: TARIQUIDAR DIMESYLATE
     Indication: PRODUCT USED FOR UNKNOWN INDICATION
     Route: 042
  6. TARIQUIDAR [Suspect]
     Active Substance: TARIQUIDAR
     Indication: PRODUCT USED FOR UNKNOWN INDICATION
     Route: 042
  7. VINORELBINE [Suspect]
     Active Substance: VINORELBINE\VINORELBINE TARTRATE
     Indication: OSTEOSARCOMA
     Dosage: 10 MIN WEEKLY 2? DOSES PER CYCLE
     Route: 042
  8. DOXORUBICIN HYDROCHLORIDE. [Suspect]
     Active Substance: DOXORUBICIN HYDROCHLORIDE
     Indication: UNDIFFERENTIATED SARCOMA
     Dosage: 15 MIN ONCE PER CYCLE
     Route: 042
  9. DOCETAXEL. [Suspect]
     Active Substance: DOCETAXEL
     Indication: NEUROENDOCRINE CARCINOMA
     Dosage: 60 MIN ONCE PER CYCLE
     Route: 042
  10. DOCETAXEL. [Suspect]
     Active Substance: DOCETAXEL
     Indication: HODGKIN^S DISEASE
     Dosage: 60 MIN ONCE PER CYCLE
     Route: 042
  11. VINORELBINE [Suspect]
     Active Substance: VINORELBINE\VINORELBINE TARTRATE
     Indication: SYNOVIAL SARCOMA
     Dosage: 10 MIN WEEKLY 2? DOSES PER CYCLE
     Route: 042
  12. VINORELBINE [Suspect]
     Active Substance: VINORELBINE\VINORELBINE TARTRATE
     Indication: PANCREATOBLASTOMA
     Dosage: 10 MIN WEEKLY 2? DOSES PER CYCLE
     Route: 042
  13. DOXORUBICIN HYDROCHLORIDE. [Suspect]
     Active Substance: DOXORUBICIN HYDROCHLORIDE
     Indication: OSTEOSARCOMA
     Dosage: 15 MIN ONCE PER CYCLE
     Route: 042
  14. DOXORUBICIN HYDROCHLORIDE. [Suspect]
     Active Substance: DOXORUBICIN HYDROCHLORIDE
     Indication: NASOPHARYNGEAL CANCER
     Dosage: 15 MIN ONCE PER CYCLE
     Route: 042
  15. DOXORUBICIN HYDROCHLORIDE. [Suspect]
     Active Substance: DOXORUBICIN HYDROCHLORIDE
     Indication: LUNG NEOPLASM
     Dosage: 15 MIN ONCE PER CYCLE
     Route: 042
  16. TARIQUIDAR [Suspect]
     Active Substance: TARIQUIDAR
     Indication: PRODUCT USED FOR UNKNOWN INDICATION
     Route: 042
  17. DOCETAXEL. [Suspect]
     Active Substance: DOCETAXEL
     Indication: HEPATOBLASTOMA
     Dosage: 60 MIN ONCE PER CYCLE
     Route: 042
  18. DOXORUBICIN HYDROCHLORIDE. [Suspect]
     Active Substance: DOXORUBICIN HYDROCHLORIDE
     Indication: EWING^S SARCOMA
     Dosage: 15 MIN ONCE PER CYCLE
     Route: 042
  19. DOCETAXEL. [Suspect]
     Active Substance: DOCETAXEL
     Indication: EWING^S SARCOMA
     Dosage: 60 MIN ONCE PER CYCLE
     Route: 042
  20. VINORELBINE [Suspect]
     Active Substance: VINORELBINE\VINORELBINE TARTRATE
     Indication: UNDIFFERENTIATED SARCOMA
     Dosage: 10 MIN WEEKLY 2? DOSES PER CYCLE
     Route: 042
  21. DOXORUBICIN HYDROCHLORIDE. [Suspect]
     Active Substance: DOXORUBICIN HYDROCHLORIDE
     Indication: PERIPHERAL NERVE SHEATH TUMOUR MALIGNANT
     Dosage: 15 MIN ONCE PER CYCLE
     Route: 042
  22. DOCETAXEL. [Suspect]
     Active Substance: DOCETAXEL
     Indication: UNDIFFERENTIATED SARCOMA
     Dosage: 60 MIN ONCE PER CYCLE
     Route: 042
  23. VINORELBINE [Suspect]
     Active Substance: VINORELBINE\VINORELBINE TARTRATE
     Indication: EWING^S SARCOMA
     Dosage: 10 MIN WEEKLY 2? DOSES PER CYCLE
     Route: 042

REACTIONS (14)
  - Hypocalcaemia [Unknown]
  - Diarrhoea [Unknown]
  - Infection [Unknown]
  - Hypomagnesaemia [Unknown]
  - Off label use [Unknown]
  - Mucosal inflammation [Unknown]
  - Neutropenia [Unknown]
  - Anaemia [Unknown]
  - Oesophagitis [Unknown]
  - Alopecia [Unknown]
  - Vomiting [Unknown]
  - Thrombocytopenia [Unknown]
  - Febrile neutropenia [Unknown]
  - Product use issue [Unknown]
